FAERS Safety Report 7103227-3 (Version None)
Quarter: 2010Q4

REPORT INFORMATION
  Report Type: 
  Country: None (occurrence: None)
  Receive Date: 20101108
  Receipt Date: 20101013
  Transmission Date: 20110411
  Serious: Yes (Other)
  Sender: FDA-Public Use
  Company Number: P0545

PATIENT
  Age: 67 Year
  Sex: Male

DRUGS (4)
  1. PROVENGE [Suspect]
     Indication: PROSTATE CANCER
     Dosage: INTRAVENOUS ; INTRAVENOUS ; INTRAVENOUS
     Route: 042
     Dates: start: 20100730, end: 20100730
  2. PROVENGE [Suspect]
     Indication: PROSTATE CANCER
     Dosage: INTRAVENOUS ; INTRAVENOUS ; INTRAVENOUS
     Route: 042
     Dates: start: 20100827, end: 20100827
  3. PROVENGE [Suspect]
     Indication: PROSTATE CANCER
     Dosage: INTRAVENOUS ; INTRAVENOUS ; INTRAVENOUS
     Route: 042
     Dates: start: 20100910, end: 20100910
  4. VITAMIN D SUPPLEMENT (ERGOCALCIFEROL) [Concomitant]

REACTIONS (1)
  - B-CELL LYMPHOMA [None]
